FAERS Safety Report 19845302 (Version 2)
Quarter: 2021Q4

REPORT INFORMATION
  Report Type: Spontaneous
  Country: US (occurrence: US)
  Receive Date: 20210916
  Receipt Date: 20211007
  Transmission Date: 20220303
  Serious: No
  Sender: FDA-Public Use
  Company Number: US-TAKEDA-2021TUS055890

PATIENT
  Sex: Female
  Weight: 47 kg

DRUGS (2)
  1. HYQVIA [Suspect]
     Active Substance: HUMAN IMMUNOGLOBULIN G\HYALURONIDASE RECOMBINANT HUMAN
     Indication: Selective IgG subclass deficiency
     Dosage: 25 GRAM, MONTHLY
     Route: 058
  2. DUPIXENT [Concomitant]
     Active Substance: DUPILUMAB
     Route: 065

REACTIONS (8)
  - Pain [Unknown]
  - Coagulopathy [Unknown]
  - Skin lesion [Unknown]
  - Discharge [Unknown]
  - Neuralgia [Unknown]
  - Therapy interrupted [Unknown]
  - Hypersensitivity [Unknown]
  - Rash [Unknown]
